FAERS Safety Report 6092131-8 (Version None)
Quarter: 2009Q1

REPORT INFORMATION
  Report Type: 
  Country: None (occurrence: None)
  Receive Date: 20090223
  Receipt Date: 20090223
  Transmission Date: 20090719
  Serious: Yes (Other)
  Sender: FDA-Public Use
  Company Number: None

PATIENT
  Sex: Male

DRUGS (1)
  1. FOSAMAX [Suspect]

REACTIONS (3)
  - ARTHRALGIA [None]
  - MYALGIA [None]
  - TENDON RUPTURE [None]
